FAERS Safety Report 5233448-6 (Version None)
Quarter: 2007Q1

REPORT INFORMATION
  Report Type: 
  Country: None (occurrence: None)
  Receive Date: 20070208
  Receipt Date: 20070129
  Transmission Date: 20070707
  Serious: Yes (Hospitalization, Other)
  Sender: FDA-Public Use
  Company Number: PL-NOVOPROD-260606

PATIENT
  Sex: Male

DRUGS (3)
  1. ACTRAPID HM PENFILL [Suspect]
     Indication: DIABETES MELLITUS INSULIN-DEPENDENT
     Route: 042
  2. NOVORAPID PENFILL [Concomitant]
     Dosage: .7 IU/KG/24 HRS
     Route: 058
  3. NOVORAPID PENFILL [Concomitant]
     Dosage: .5 IU/KG/24 HRS

REACTIONS (2)
  - BLOOD GLUCOSE FLUCTUATION [None]
  - NEONATAL INFECTION [None]
